FAERS Safety Report 16748237 (Version 1)
Quarter: 2019Q3

REPORT INFORMATION
  Report Type: Report from Study
  Country: None (occurrence: CA)
  Receive Date: 20190827
  Receipt Date: 20190827
  Transmission Date: 20191005
  Serious: Yes (Other)
  Sender: FDA-Public Use
  Company Number: CA-ABBVIE-19K-028-2897859-00

PATIENT
  Sex: Female

DRUGS (2)
  1. IMURAN [Concomitant]
     Active Substance: AZATHIOPRINE
     Indication: COLITIS ULCERATIVE
  2. HUMIRA [Suspect]
     Active Substance: ADALIMUMAB
     Indication: COLITIS ULCERATIVE
     Route: 058
     Dates: start: 20080521, end: 2013

REACTIONS (11)
  - Anal fistula [Unknown]
  - Photophobia [Unknown]
  - Anorectal disorder [Unknown]
  - Headache [Unknown]
  - Proctalgia [Unknown]
  - Anal abscess [Unknown]
  - Intestinal resection [Unknown]
  - Coordination abnormal [Unknown]
  - Diarrhoea [Unknown]
  - Unevaluable event [Unknown]
  - Haematochezia [Unknown]

NARRATIVE: CASE EVENT DATE: 2009
